FAERS Safety Report 24603821 (Version 1)
Quarter: 2024Q4

REPORT INFORMATION
  Report Type: Report from Study
  Country: MX (occurrence: MX)
  Receive Date: 20241111
  Receipt Date: 20241111
  Transmission Date: 20250114
  Serious: Yes (Hospitalization, Other)
  Sender: BIOVITRUM
  Company Number: MX-AstraZeneca-CH-00738801A

PATIENT
  Age: 3 Month
  Sex: Male
  Weight: 6.4 kg

DRUGS (12)
  1. PALIVIZUMAB [Suspect]
     Active Substance: PALIVIZUMAB
     Indication: Respiratory syncytial virus bronchiolitis
     Dosage: 1ST DOSE
     Route: 030
     Dates: start: 20240213, end: 20240213
  2. PALIVIZUMAB [Suspect]
     Active Substance: PALIVIZUMAB
     Dosage: 2ND DOSE
     Route: 030
     Dates: start: 20240313, end: 20240313
  3. PALIVIZUMAB [Suspect]
     Active Substance: PALIVIZUMAB
     Dosage: 3RD DOSE
     Route: 030
     Dates: start: 20240410, end: 20240410
  4. PALIVIZUMAB [Suspect]
     Active Substance: PALIVIZUMAB
     Dosage: 4TH DOSE
     Route: 030
     Dates: start: 20240515, end: 20240515
  5. PALIVIZUMAB [Suspect]
     Active Substance: PALIVIZUMAB
     Dosage: 5TH DOSE
     Route: 030
     Dates: start: 20240617, end: 20240617
  6. PALIVIZUMAB [Suspect]
     Active Substance: PALIVIZUMAB
     Dosage: 6TH DOSE
     Route: 030
     Dates: start: 20241029
  7. BUDESONIDE [Concomitant]
     Active Substance: BUDESONIDE
     Indication: Product used for unknown indication
     Dosage: 2 MILLILITER, Q12H
     Dates: start: 20240820, end: 20240824
  8. BUDESONIDE [Concomitant]
     Active Substance: BUDESONIDE
     Dosage: 2 MILLILITER, Q12H
     Dates: start: 20240909, end: 20240916
  9. BUDESONIDE [Concomitant]
     Active Substance: BUDESONIDE
     Dosage: 1 MILLILITER
     Route: 065
     Dates: start: 20240924
  10. PREDNISOLONE [Concomitant]
     Active Substance: PREDNISOLONE
     Indication: Product used for unknown indication
     Dosage: 2.5 MILLILITER
     Route: 065
     Dates: start: 20240924
  11. ALBUTEROL [Concomitant]
     Active Substance: ALBUTEROL
     Indication: Product used for unknown indication
     Dosage: 0.005 MILLILITER, Q8H
     Route: 065
     Dates: start: 20240925, end: 20241002
  12. FLUTICASONE [Concomitant]
     Active Substance: FLUTICASONE
     Indication: Product used for unknown indication
     Dosage: 2 DOSAGE FORM, Q12H
     Dates: start: 202408

REACTIONS (5)
  - Restlessness [Recovered/Resolved]
  - Crying [Recovered/Resolved]
  - Sleep disorder [Recovered/Resolved]
  - Cough [Recovered/Resolved]
  - Inguinal hernia [Recovered/Resolved]

NARRATIVE: CASE EVENT DATE: 20240319
